FAERS Safety Report 24383669 (Version 1)
Quarter: 2024Q4

REPORT INFORMATION
  Report Type: Spontaneous
  Country: US (occurrence: US)
  Receive Date: 20241001
  Receipt Date: 20241001
  Transmission Date: 20250114
  Serious: No
  Sender: MERCK
  Company Number: US-009507513-2409USA008026

PATIENT
  Sex: Female
  Weight: 54.4 kg

DRUGS (10)
  1. WINREVAIR [Suspect]
     Active Substance: SOTATERCEPT-CSRK
     Indication: Product used for unknown indication
     Dosage: UNK
     Route: 065
  2. REMODULIN [Suspect]
     Active Substance: TREPROSTINIL
     Indication: Pulmonary arterial hypertension
     Dosage: UNK
     Route: 041
     Dates: start: 20191023
  3. REMODULIN [Suspect]
     Active Substance: TREPROSTINIL
     Dosage: 0.096 MICROGRAM PER KILOGRAM, CONTINUED
     Route: 041
     Dates: start: 202409
  4. POTASSIUM CHLORIDE [Concomitant]
     Active Substance: POTASSIUM CHLORIDE
  5. TADALAFIL [Concomitant]
     Active Substance: TADALAFIL
  6. OXYGEN [Concomitant]
     Active Substance: OXYGEN
  7. AMBRISENTAN [Concomitant]
     Active Substance: AMBRISENTAN
  8. ACETAMINOPHEN [Concomitant]
     Active Substance: ACETAMINOPHEN
  9. FUROSEMIDE [Concomitant]
     Active Substance: FUROSEMIDE
  10. SYMTUZA [Concomitant]
     Active Substance: COBICISTAT\DARUNAVIR\EMTRICITABINE\TENOFOVIR ALAFENAMIDE

REACTIONS (1)
  - Laboratory test abnormal [Unknown]
